FAERS Safety Report 22291321 (Version 1)
Quarter: 2023Q2

REPORT INFORMATION
  Report Type: Spontaneous
  Country: CN (occurrence: CN)
  Receive Date: 20230506
  Receipt Date: 20230506
  Transmission Date: 20230721
  Serious: Yes (Death, Life-Threatening, Hospitalization, Other)
  Sender: FDA-Public Use
  Company Number: CN-AMGEN-CHNSP2023077229

PATIENT

DRUGS (3)
  1. PANITUMUMAB [Suspect]
     Active Substance: PANITUMUMAB
     Indication: Colorectal cancer metastatic
     Dosage: 9 MILLIGRAM/KILOGRAM,  DAY 1
     Route: 042
     Dates: start: 201907, end: 202112
  2. CAPECITABINE [Suspect]
     Active Substance: CAPECITABINE
     Indication: Colorectal cancer
     Dosage: 800 MILLIGRAM/SQ. METER, BID,  ON DAYS 1-14
     Route: 048
     Dates: start: 201907, end: 202112
  3. IRINOTECAN [Suspect]
     Active Substance: IRINOTECAN
     Indication: Colorectal cancer
     Dosage: 200 MILLIGRAM/SQ. METER, ON DAY 1
     Route: 042
     Dates: start: 201907, end: 202112

REACTIONS (18)
  - Death [Fatal]
  - Neutropenia [Unknown]
  - Febrile neutropenia [Unknown]
  - Thrombocytopenia [Unknown]
  - Metastases to liver [Unknown]
  - Hospitalisation [Unknown]
  - Colorectal cancer [Unknown]
  - Toxicity to various agents [Unknown]
  - Leukopenia [Unknown]
  - Palmar-plantar erythrodysaesthesia syndrome [Unknown]
  - Rash [Unknown]
  - Paronychia [Unknown]
  - Stomatitis [Unknown]
  - Diarrhoea [Unknown]
  - Nausea [Unknown]
  - Vomiting [Unknown]
  - Hypomagnesaemia [Unknown]
  - Therapy partial responder [Unknown]
